FAERS Safety Report 24990864 (Version 1)
Quarter: 2025Q1

REPORT INFORMATION
  Report Type: Spontaneous
  Country: US (occurrence: US)
  Receive Date: 20250220
  Receipt Date: 20250220
  Transmission Date: 20250408
  Serious: No
  Sender: XERIS PHARMACEUTICALS
  Company Number: US-BRIAN CONNER SVP QUALITY AND CHIEF COMPLIANCE OFFICER-2025XER00070

PATIENT
  Age: 54 Year
  Sex: Female
  Weight: 88.45 kg

DRUGS (1)
  1. GVOKE [Suspect]
     Active Substance: GLUCAGON
     Indication: Hypoglycaemia
     Dates: start: 20250129

REACTIONS (7)
  - Device delivery system issue [Recovered/Resolved]
  - Expired product administered [Recovered/Resolved]
  - Thirst [Not Recovered/Not Resolved]
  - Fatigue [Not Recovered/Not Resolved]
  - Injection site pain [Recovering/Resolving]
  - Injection site oedema [Recovering/Resolving]
  - Headache [Not Recovered/Not Resolved]

NARRATIVE: CASE EVENT DATE: 20250129
